FAERS Safety Report 12366960 (Version 2)
Quarter: 2016Q2

REPORT INFORMATION
  Report Type: Spontaneous
  Country: US (occurrence: US)
  Receive Date: 20160513
  Receipt Date: 20160609
  Transmission Date: 20160815
  Serious: No
  Sender: FDA-Public Use
  Company Number: US-PFIZER INC-2016226652

PATIENT
  Age: 50 Year
  Sex: Female
  Weight: 97.88 kg

DRUGS (13)
  1. LYRICA [Suspect]
     Active Substance: PREGABALIN
     Dosage: 100 MG, 2X/DAY
     Route: 048
     Dates: start: 20160301
  2. SYNTHROID [Concomitant]
     Active Substance: LEVOTHYROXINE SODIUM
     Dosage: 100 UG, DAILY
     Route: 048
     Dates: start: 20160114
  3. LYRICA [Suspect]
     Active Substance: PREGABALIN
     Dosage: 100 MG, 2X/DAY
     Route: 048
     Dates: start: 20140815
  4. GABAPENTIN. [Concomitant]
     Active Substance: GABAPENTIN
     Dosage: 200 MG, 2X/DAY
     Route: 048
  5. LEVOTHYROXINE. [Concomitant]
     Active Substance: LEVOTHYROXINE
     Dosage: 125 UG, DAILY
     Route: 048
     Dates: start: 20140723
  6. CIPRO [Concomitant]
     Active Substance: CIPROFLOXACIN HYDROCHLORIDE
     Dosage: 500 MG, 2X/DAY (TAKE 1 TABLET BY ORAL ROUTE EVERY 12 HOURS)
     Route: 048
     Dates: start: 20160307
  7. PROPRANOLOL [Concomitant]
     Active Substance: PROPRANOLOL\PROPRANOLOL HYDROCHLORIDE
     Dosage: 80 MG, 2X/DAY
     Dates: start: 20140723
  8. LIOTHYRONINE [Concomitant]
     Active Substance: LIOTHYRONINE
     Dosage: 5 UG, DAILY
     Route: 048
     Dates: start: 20160303
  9. LYRICA [Suspect]
     Active Substance: PREGABALIN
     Indication: FIBROMYALGIA
     Dosage: 75 MG, 2X/DAY
     Route: 048
     Dates: start: 20140723
  10. FLONASE [Concomitant]
     Active Substance: FLUTICASONE PROPIONATE
     Dosage: 50 UG, USE ONE SPRAY IN EACH NOSTRILS ONCE DAILY
     Dates: start: 20160114
  11. VITAMIN D3 [Concomitant]
     Active Substance: CHOLECALCIFEROL
     Dosage: 6000 IU, DAILY
     Route: 048
     Dates: start: 20130930
  12. METOPROLOL SUCCINATE. [Concomitant]
     Active Substance: METOPROLOL SUCCINATE
     Dosage: 100 MG, DAILY
     Route: 048
     Dates: start: 20151113
  13. FLONASE [Concomitant]
     Active Substance: FLUTICASONE PROPIONATE
     Dosage: 50 MCG/ACTUATION NASAL SPRAY EACH NOSTRIL, SIG DESC: SPRAY 1SPRAY BY INTRANASAL ROUTE EVERY DAY
     Route: 045
     Dates: start: 20140815

REACTIONS (13)
  - Drug effect incomplete [Unknown]
  - Musculoskeletal pain [Unknown]
  - Joint lock [Unknown]
  - Musculoskeletal stiffness [Unknown]
  - Abdominal tenderness [Unknown]
  - Back pain [Unknown]
  - Arthralgia [Unknown]
  - Asthenia [Unknown]
  - Muscle spasms [Unknown]
  - Swelling [Unknown]
  - Pain [Recovering/Resolving]
  - Gait disturbance [Unknown]
  - Musculoskeletal discomfort [Unknown]
